FAERS Safety Report 6522365-7 (Version None)
Quarter: 2009Q4

REPORT INFORMATION
  Report Type: 
  Country: None (occurrence: None)
  Receive Date: 20091230
  Receipt Date: 20091120
  Transmission Date: 20100525
  Serious: Yes (Death, Other)
  Sender: FDA-Public Use
  Company Number: US-BAXTER-2009BH011847

PATIENT
  Age: 43 Year
  Sex: Female
  Weight: 42 kg

DRUGS (38)
  1. HEPARIN SODIUM INJECTION [Suspect]
     Indication: DRUG USE FOR UNKNOWN INDICATION
     Route: 040
     Dates: start: 20071205, end: 20071205
  2. HEPARIN SODIUM 5,000 UNITS IN DEXTROSE 5% [Suspect]
     Indication: DRUG USE FOR UNKNOWN INDICATION
     Route: 041
     Dates: start: 20071205, end: 20071206
  3. NEORAL [Concomitant]
     Indication: DRUG USE FOR UNKNOWN INDICATION
     Route: 065
  4. CELLCEPT [Concomitant]
     Indication: DRUG USE FOR UNKNOWN INDICATION
     Route: 065
  5. PREDNISONE [Concomitant]
     Indication: DRUG USE FOR UNKNOWN INDICATION
     Route: 065
  6. BIAXIN [Concomitant]
     Indication: DRUG USE FOR UNKNOWN INDICATION
     Route: 065
  7. VFEND [Concomitant]
     Indication: DRUG USE FOR UNKNOWN INDICATION
     Route: 065
  8. ANCOBON [Concomitant]
     Indication: DRUG USE FOR UNKNOWN INDICATION
     Route: 065
  9. HYZAAR [Concomitant]
     Indication: DRUG USE FOR UNKNOWN INDICATION
     Route: 065
  10. INSULIN [Concomitant]
     Indication: DRUG USE FOR UNKNOWN INDICATION
     Route: 065
  11. HUMALOG [Concomitant]
     Indication: DRUG USE FOR UNKNOWN INDICATION
     Route: 065
  12. PANCREASE MICROTABS [Concomitant]
     Indication: DRUG USE FOR UNKNOWN INDICATION
     Route: 048
  13. XANAX [Concomitant]
     Indication: DRUG USE FOR UNKNOWN INDICATION
     Route: 065
  14. TYLENOL W/ CODEINE NO. 3 [Concomitant]
     Indication: DRUG USE FOR UNKNOWN INDICATION
     Route: 065
  15. PROVENTIL [Concomitant]
     Indication: DRUG USE FOR UNKNOWN INDICATION
     Route: 055
  16. K-DUR [Concomitant]
     Indication: DRUG USE FOR UNKNOWN INDICATION
     Route: 065
  17. CENTRUM [Concomitant]
     Indication: DRUG USE FOR UNKNOWN INDICATION
     Route: 065
  18. VITAMIN B W/ZINC/ [Concomitant]
     Indication: DRUG USE FOR UNKNOWN INDICATION
     Route: 065
  19. VITAMIN E [Concomitant]
     Indication: DRUG USE FOR UNKNOWN INDICATION
     Route: 065
  20. OSCAL 500-D [Concomitant]
     Indication: DRUG USE FOR UNKNOWN INDICATION
     Route: 065
  21. LASIX [Concomitant]
     Indication: DRUG USE FOR UNKNOWN INDICATION
     Route: 065
  22. LOPRESSOR [Concomitant]
     Indication: DRUG USE FOR UNKNOWN INDICATION
     Route: 065
  23. XOPENEX [Concomitant]
     Indication: DRUG USE FOR UNKNOWN INDICATION
     Route: 065
  24. ATROVENT [Concomitant]
     Indication: DRUG USE FOR UNKNOWN INDICATION
     Route: 065
  25. ZOSYN [Concomitant]
     Indication: DRUG USE FOR UNKNOWN INDICATION
     Route: 042
  26. ZOFRAN [Concomitant]
     Indication: DRUG USE FOR UNKNOWN INDICATION
     Route: 065
  27. SODIUM ACID PHOSPHATE [Concomitant]
     Indication: DRUG USE FOR UNKNOWN INDICATION
     Route: 065
  28. FENTANYL-100 [Concomitant]
     Indication: DRUG USE FOR UNKNOWN INDICATION
     Route: 042
  29. DEMEROL [Concomitant]
     Indication: DRUG USE FOR UNKNOWN INDICATION
     Route: 042
  30. DILAUDID [Concomitant]
     Indication: DRUG USE FOR UNKNOWN INDICATION
     Route: 042
  31. LEVAQUIN [Concomitant]
     Indication: DRUG USE FOR UNKNOWN INDICATION
     Route: 042
  32. LOVENOX [Concomitant]
     Indication: DRUG USE FOR UNKNOWN INDICATION
     Route: 065
  33. NAVCAN [Concomitant]
     Indication: DRUG USE FOR UNKNOWN INDICATION
     Route: 042
  34. VERSED [Concomitant]
     Indication: DRUG USE FOR UNKNOWN INDICATION
     Route: 042
  35. LEVOPHED [Concomitant]
     Indication: DRUG USE FOR UNKNOWN INDICATION
     Route: 042
  36. CALCIUM CHLORIDE [Concomitant]
     Indication: DRUG USE FOR UNKNOWN INDICATION
     Route: 042
  37. HYDROCORTISONE [Concomitant]
     Indication: DRUG USE FOR UNKNOWN INDICATION
     Route: 042
  38. BICARBONATE [Concomitant]
     Indication: DRUG USE FOR UNKNOWN INDICATION
     Route: 042

REACTIONS (10)
  - ACIDOSIS [None]
  - CARDIO-RESPIRATORY ARREST [None]
  - HYPERSENSITIVITY [None]
  - HYPERTENSION [None]
  - INFECTION [None]
  - PLATELET COUNT DECREASED [None]
  - RENAL FAILURE ACUTE [None]
  - RESPIRATORY FAILURE [None]
  - SEPTIC SHOCK [None]
  - TYPE 2 DIABETES MELLITUS [None]
